FAERS Safety Report 20035291 (Version 1)
Quarter: 2021Q4

REPORT INFORMATION
  Report Type: Report from Study
  Country: CA (occurrence: CA)
  Receive Date: 20211104
  Receipt Date: 20211104
  Transmission Date: 20220303
  Serious: Yes (Other)
  Sender: FDA-Public Use
  Company Number: CA-UCBSA-2021052040

PATIENT
  Sex: Male

DRUGS (1)
  1. BRIVARACETAM [Suspect]
     Active Substance: BRIVARACETAM
     Indication: Partial seizures
     Dosage: 40 MILLIGRAM, 2X/DAY (BID)

REACTIONS (5)
  - Seizure [Unknown]
  - Dyspnoea [Unknown]
  - Adverse drug reaction [Unknown]
  - Musculoskeletal stiffness [Unknown]
  - Off label use [Unknown]
